FAERS Safety Report 9524367 (Version 1)
Quarter: 2013Q1

REPORT INFORMATION
  Report Type: Spontaneous
  Country: US (occurrence: None)
  Receive Date: 20130305
  Receipt Date: 20130305
  Transmission Date: 20140127
  Serious: Yes (Other)
  Sender: FDA-Public Use
  Company Number: 163-21880-12033438

PATIENT
  Age: 76 Year
  Sex: Female
  Weight: 58.97 kg

DRUGS (9)
  1. REVLIMID (LENALIDOMIDE) (25 MILLIGRAM, CAPSULES) [Suspect]
     Indication: PLASMA CELL MYELOMA
     Route: 048
     Dates: start: 201006, end: 201007
  2. SYNTHROID (LEVOTHYROXINE SODIUM0 [Concomitant]
  3. STEROID (CORTICOSTEROID NOS) [Concomitant]
  4. CLONIDINE (CLONIDINE) [Concomitant]
  5. ASPIRIN (ACETYLSALICYLIC ACID) [Concomitant]
  6. BLOOD PRESSURE MEDS (ANTIHYPERTENSIVES) [Concomitant]
  7. LASIX (FUROSEMIDE) [Concomitant]
  8. MEGACE (MEGESTROL ACETATE) [Concomitant]
  9. COUMADIN (WARFARIN SODIUM) [Concomitant]

REACTIONS (3)
  - Pancytopenia [None]
  - Rash [None]
  - Oedema mouth [None]
